FAERS Safety Report 8272938-9 (Version None)
Quarter: 2012Q2

REPORT INFORMATION
  Report Type: 
  Country: None (occurrence: None)
  Receive Date: 20120411
  Receipt Date: 20120330
  Transmission Date: 20120825
  Serious: Yes (Hospitalization)
  Sender: FDA-Public Use
  Company Number: GB-ELI_LILLY_AND_COMPANY-GB201204000718

PATIENT
  Age: 34 Year
  Sex: Female

DRUGS (2)
  1. STRATTERA [Suspect]
     Indication: ATTENTION DEFICIT/HYPERACTIVITY DISORDER
  2. VALPROATE SODIUM [Concomitant]

REACTIONS (6)
  - ABNORMAL BEHAVIOUR [None]
  - HOSPITALISATION [None]
  - URINARY RETENTION [None]
  - ANXIETY [None]
  - POOR QUALITY SLEEP [None]
  - AGITATION [None]
